FAERS Safety Report 24839747 (Version 3)
Quarter: 2025Q1

REPORT INFORMATION
  Report Type: Spontaneous
  Country: JP (occurrence: JP)
  Receive Date: 20250114
  Receipt Date: 20250319
  Transmission Date: 20250409
  Serious: No
  Sender: ASTELLAS
  Company Number: JP-ASTELLAS-2024-AER-026013

PATIENT
  Age: 9 Decade
  Sex: Male

DRUGS (2)
  1. PADCEV [Suspect]
     Active Substance: ENFORTUMAB VEDOTIN-EJFV
     Indication: Bladder cancer
     Route: 065
     Dates: start: 20241122, end: 20241129
  2. KEYTRUDA [Concomitant]
     Active Substance: PEMBROLIZUMAB
     Indication: Bladder cancer
     Route: 065
     Dates: start: 20241122

REACTIONS (1)
  - Blood glucose increased [Not Recovered/Not Resolved]
